FAERS Safety Report 13409766 (Version 1)
Quarter: 2017Q2

REPORT INFORMATION
  Report Type: Spontaneous
  Country: HK (occurrence: HK)
  Receive Date: 20170406
  Receipt Date: 20170406
  Transmission Date: 20170830
  Serious: Yes (Hospitalization, Other)
  Sender: FDA-Public Use
  Company Number: HK-STRIDES ARCOLAB LIMITED-2017SP005863

PATIENT

DRUGS (3)
  1. TACROLIMUS. [Suspect]
     Active Substance: TACROLIMUS
     Indication: RENAL TRANSPLANT
     Dosage: 2.5 MG, BID
     Route: 065
  2. MYCOPHENOLATE MOFETIL. [Suspect]
     Active Substance: MYCOPHENOLATE MOFETIL
     Indication: RENAL TRANSPLANT
     Dosage: 750 MG, BID
     Route: 065
  3. PREDNISOLONE. [Suspect]
     Active Substance: PREDNISOLONE
     Indication: RENAL TRANSPLANT
     Dosage: 10 MG, QD
     Route: 065

REACTIONS (9)
  - Vascular pseudoaneurysm [Recovered/Resolved]
  - Pseudomonal sepsis [Recovered/Resolved]
  - Renal impairment [Recovered/Resolved]
  - Enterococcal infection [Recovered/Resolved]
  - Abdominal pain lower [Recovered/Resolved]
  - Pseudomonas infection [Recovered/Resolved]
  - Pyrexia [Recovered/Resolved]
  - Chills [Recovered/Resolved]
  - Malaise [Recovered/Resolved]
